FAERS Safety Report 19390698 (Version 3)
Quarter: 2024Q2

REPORT INFORMATION
  Report Type: Spontaneous
  Country: US (occurrence: US)
  Receive Date: 20210608
  Receipt Date: 20240404
  Transmission Date: 20240716
  Serious: Yes (Other)
  Sender: FDA-Public Use
  Company Number: US-PFIZER INC-2021611983

PATIENT
  Age: 84 Year
  Sex: Female

DRUGS (1)
  1. ZOLEDRONIC ACID [Suspect]
     Active Substance: ZOLEDRONIC ACID
     Indication: Osteoporosis
     Dosage: SINGLE INFUSION

REACTIONS (3)
  - Giant cell arteritis [Recovering/Resolving]
  - Blindness [Not Recovered/Not Resolved]
  - Off label use [Unknown]
